FAERS Safety Report 9716689 (Version 2)
Quarter: 2013Q4

REPORT INFORMATION
  Report Type: Spontaneous
  Country: US (occurrence: US)
  Receive Date: 20131127
  Receipt Date: 20131127
  Transmission Date: 20140711
  Serious: Yes (Hospitalization, Disabling, Other)
  Sender: FDA-Public Use
  Company Number: US-009507513-0905USA02289

PATIENT
  Sex: Female
  Weight: 58.6 kg

DRUGS (8)
  1. FOSAMAX [Suspect]
     Indication: OSTEOPOROSIS
     Dosage: 70 MG, QW
     Route: 048
     Dates: start: 2005, end: 200902
  2. FOSAMAX [Suspect]
     Dosage: 10 MG, QD
     Route: 048
  3. LIPITOR [Concomitant]
     Indication: BLOOD CHOLESTEROL INCREASED
     Dates: start: 2002
  4. LIPITOR [Concomitant]
     Indication: HYPERLIPIDAEMIA
  5. ASPIRIN [Concomitant]
  6. QUINARETIC [Concomitant]
     Indication: HYPERTENSION
     Dates: start: 1995
  7. CALTRATE (CALCIUM CARBONATE) [Concomitant]
     Indication: OSTEOPOROSIS
  8. TAZTIA XT [Concomitant]
     Indication: HYPERTENSION
     Dates: start: 1995

REACTIONS (30)
  - Jaw fracture [Unknown]
  - Ageusia [Unknown]
  - Hypoaesthesia [Unknown]
  - Parotitis [Not Recovered/Not Resolved]
  - Depression [Unknown]
  - Hip fracture [Unknown]
  - Osteomyelitis [Not Recovered/Not Resolved]
  - Femoral neck fracture [Unknown]
  - Carotid artery stenosis [Unknown]
  - Osteonecrosis of jaw [Unknown]
  - Oral cavity fistula [Not Recovered/Not Resolved]
  - Oral infection [Unknown]
  - Angiopathy [Unknown]
  - Ageusia [Unknown]
  - Arthropathy [Unknown]
  - Sinusitis [Unknown]
  - Depression [Unknown]
  - Fistula discharge [Unknown]
  - Syncope [Unknown]
  - Sialoadenitis [Not Recovered/Not Resolved]
  - Device dislocation [Unknown]
  - Swelling [Unknown]
  - Diverticulum intestinal [Unknown]
  - Fall [Unknown]
  - Anaemia postoperative [Unknown]
  - Arteriosclerosis coronary artery [Unknown]
  - Anaemia [Unknown]
  - Decreased appetite [Unknown]
  - Peripheral vascular disorder [Unknown]
  - Constipation [Unknown]
